FAERS Safety Report 7509436-3 (Version None)
Quarter: 2011Q2

REPORT INFORMATION
  Report Type: 
  Country: None (occurrence: None)
  Receive Date: 20110527
  Receipt Date: 20110513
  Transmission Date: 20111010
  Serious: Yes (Hospitalization)
  Sender: FDA-Public Use
  Company Number: JP-ROCHE-765641

PATIENT
  Sex: Female
  Weight: 17.2 kg

DRUGS (36)
  1. PREDNISOLONE [Concomitant]
     Route: 048
     Dates: start: 20091019, end: 20091101
  2. PREDNISOLONE [Concomitant]
     Route: 048
     Dates: start: 20100104, end: 20100110
  3. PREDNISOLONE [Concomitant]
     Route: 048
     Dates: start: 20100208, end: 20100228
  4. IBRUPROFEN [Concomitant]
     Dosage: PERORAL AGENT
     Route: 048
  5. METHYLPREDNISOLONE SODIUM SUCCINATE [Suspect]
     Route: 041
     Dates: start: 20101104, end: 20101104
  6. PREDNISOLONE [Concomitant]
     Route: 048
     Dates: start: 20100125, end: 20100131
  7. PREDNISOLONE [Concomitant]
     Route: 048
     Dates: start: 20101105, end: 20101203
  8. METHYLPEDNISOLONE SODIUM SUCCINATE [Suspect]
     Route: 041
     Dates: start: 20091207, end: 20091207
  9. METHYLPREDNISOLONE SODIUM SUCCINATE [Suspect]
     Route: 041
     Dates: start: 20091211, end: 20091211
  10. PREDNISOLONE [Concomitant]
     Route: 048
     Dates: start: 20100118, end: 20100124
  11. PREDNISOLONE [Concomitant]
     Route: 048
     Dates: start: 20100201, end: 20100207
  12. PREDNISOLONE [Concomitant]
     Route: 048
     Dates: start: 20100301, end: 20100314
  13. FOLIC ACID [Concomitant]
     Dosage: PERORAL AGENT
     Route: 048
     Dates: start: 20101111
  14. PREDNISOLONE [Concomitant]
     Route: 048
     Dates: start: 20100111, end: 20100117
  15. PREDNISOLONE [Concomitant]
     Route: 048
     Dates: start: 20100524, end: 20100620
  16. TOCILIZUMAB [Suspect]
     Route: 041
     Dates: start: 20091221, end: 20101025
  17. PREDNISOLONE [Concomitant]
     Dosage: FORM:PERORAL AGENT
     Route: 048
     Dates: start: 20090918, end: 20091018
  18. PREDNISOLONE [Concomitant]
     Route: 048
     Dates: start: 20091102, end: 20091115
  19. PREDNISOLONE [Concomitant]
     Route: 048
     Dates: start: 20101012, end: 20101103
  20. PREDNISOLONE [Concomitant]
     Route: 048
     Dates: start: 20100720, end: 20100816
  21. PREDNISOLONE [Concomitant]
     Route: 048
     Dates: start: 20100817, end: 20100912
  22. TOCILIZUMAB [Suspect]
     Route: 041
     Dates: start: 20101115, end: 20101227
  23. METHYLPREDNISOLONE SODIUM SUCCINATE [Suspect]
     Route: 041
     Dates: start: 20091209, end: 20091209
  24. METHYLPREDNISOLONE SODIUM SUCCINATE [Suspect]
     Route: 041
     Dates: start: 20101204, end: 20101206
  25. PREDNISOLONE [Concomitant]
     Route: 048
     Dates: start: 20091119, end: 20091213
  26. PREDNISOLONE [Concomitant]
     Route: 048
     Dates: start: 20100315, end: 20100324
  27. PREDNISOLONE [Concomitant]
     Route: 048
     Dates: start: 20100325, end: 20100523
  28. PREDNISOLONE [Concomitant]
     Route: 048
     Dates: start: 20100621, end: 20100719
  29. PREDNISOLONE [Concomitant]
     Route: 048
     Dates: start: 20100913, end: 20101011
  30. PREDNISOLONE [Concomitant]
     Route: 048
     Dates: start: 20101207
  31. RHEUMATREX [Concomitant]
     Route: 048
     Dates: start: 20101110, end: 20101201
  32. RHEUMATREX [Concomitant]
     Route: 048
     Dates: start: 20101210
  33. PREDNISOLONE [Concomitant]
     Route: 048
     Dates: start: 20091116, end: 20091118
  34. PREDNISOLONE [Concomitant]
     Route: 048
     Dates: start: 20091214, end: 20091222
  35. PREDNISOLONE [Concomitant]
     Route: 048
     Dates: start: 20091223, end: 20100103
  36. ALFAROL [Concomitant]
     Dosage: PERORAL AGENT
     Route: 048

REACTIONS (3)
  - ORAL HERPES [None]
  - ARTHRITIS [None]
  - JUVENILE ARTHRITIS [None]
